FAERS Safety Report 19660968 (Version 2)
Quarter: 2021Q3

REPORT INFORMATION
  Report Type: Spontaneous
  Country: US (occurrence: US)
  Receive Date: 20210805
  Receipt Date: 20210902
  Transmission Date: 20211014
  Serious: No
  Sender: FDA-Public Use
  Company Number: US-SA-2021SA258812

PATIENT
  Age: 62 Year
  Sex: Female

DRUGS (20)
  1. POTASSIUM [Concomitant]
     Active Substance: POTASSIUM
     Dosage: UNK
     Route: 048
  2. 5?HTP [OXITRIPTAN] [Concomitant]
     Active Substance: OXITRIPTAN
  3. NP THYROID [Concomitant]
     Active Substance: LEVOTHYROXINE\LIOTHYRONINE
     Dosage: 60 MG
     Route: 048
  4. MULTIVITAMIN + MINERAL [Concomitant]
     Active Substance: MINERALS\VITAMINS
  5. NP THYROID [Concomitant]
     Active Substance: LEVOTHYROXINE\LIOTHYRONINE
  6. DUPIXENT [Suspect]
     Active Substance: DUPILUMAB
     Indication: DERMATITIS ALLERGIC
  7. ESTRADIOL. [Concomitant]
     Active Substance: ESTRADIOL
  8. POTASSIUM [Concomitant]
     Active Substance: POTASSIUM
  9. MAGNESIUM [Concomitant]
     Active Substance: MAGNESIUM
     Dosage: 300 MG
     Route: 048
  10. ESTRADIOL. [Concomitant]
     Active Substance: ESTRADIOL
     Dosage: UNK
     Route: 065
  11. MULTIVITAMIN + MINERAL [Concomitant]
     Active Substance: MINERALS\VITAMINS
     Dosage: UNK
     Route: 065
  12. PROBIOTICS NOS [Concomitant]
     Active Substance: PROBIOTICS NOS
     Dosage: UNK
     Route: 048
  13. BACTRIM [Concomitant]
     Active Substance: SULFAMETHOXAZOLE\TRIMETHOPRIM
     Dosage: 400 MG
     Route: 048
  14. DUPIXENT [Suspect]
     Active Substance: DUPILUMAB
     Indication: DERMATITIS ATOPIC
     Dosage: 300 MG, QOW
     Route: 058
     Dates: start: 202011
  15. DIGESTIVE ADVANTAGE [BACILLUS COAGULANS] [Concomitant]
  16. ESCITALOPRAM OXALATE. [Concomitant]
     Active Substance: ESCITALOPRAM OXALATE
     Dosage: UNK
     Route: 065
  17. DIGESTIVE ADVANTAGE [BACILLUS COAGULANS] [Concomitant]
     Dosage: UNK
     Route: 065
  18. 5?HTP [OXITRIPTAN] [Concomitant]
     Active Substance: OXITRIPTAN
     Dosage: 100 MG
     Route: 048
  19. MAGNESIUM [Concomitant]
     Active Substance: MAGNESIUM
  20. BACTRIM [Concomitant]
     Active Substance: SULFAMETHOXAZOLE\TRIMETHOPRIM
     Dosage: 80 MG
     Route: 048

REACTIONS (4)
  - Product dose omission issue [Unknown]
  - Pruritus [Unknown]
  - Injection site pain [Unknown]
  - Sleep disorder [Unknown]

NARRATIVE: CASE EVENT DATE: 202106
